FAERS Safety Report 16404210 (Version 1)
Quarter: 2019Q3

REPORT INFORMATION
  Report Type: Spontaneous
  Country: US (occurrence: US)
  Receive Date: 20190606
  Receipt Date: 20190606
  Transmission Date: 20191004
  Serious: Yes (Hospitalization)
  Sender: FDA-Public Use
  Company Number: None

PATIENT
  Age: 80 Year
  Sex: Female

DRUGS (13)
  1. TACROLIMUS. [Suspect]
     Active Substance: TACROLIMUS
     Route: 048
     Dates: start: 20160708
  2. ASPIRIN. [Concomitant]
     Active Substance: ASPIRIN
  3. PROPAFENONE. [Concomitant]
     Active Substance: PROPAFENONE
  4. DILTIAZEM. [Concomitant]
     Active Substance: DILTIAZEM
  5. SMZ-TMP [Concomitant]
     Active Substance: SULFAMETHOXAZOLE\TRIMETHOPRIM
  6. FOLIC ACID. [Concomitant]
     Active Substance: FOLIC ACID
  7. SIMVASTATIN. [Concomitant]
     Active Substance: SIMVASTATIN
  8. MULTI-VITAMIN [Concomitant]
     Active Substance: .ALPHA.-TOCOPHEROL ACETATE, DL-\ASCORBIC ACID\CYANOCOBALAMIN\FLUORIDE ION\FOLIC ACID\NIACIN\PYRIDOXINE\RIBOFLAVIN\THIAMINE\VITAMIN A\VITAMIN D
  9. OMEPRAZOLE. [Concomitant]
     Active Substance: OMEPRAZOLE
  10. CARVEDIOL [Concomitant]
     Active Substance: CARVEDILOL
  11. ALLOPURINOL. [Concomitant]
     Active Substance: ALLOPURINOL
  12. KETOCONAZOLE. [Concomitant]
     Active Substance: KETOCONAZOLE
  13. MAGNESIUM [Concomitant]
     Active Substance: MAGNESIUM

REACTIONS (1)
  - Cardiac failure congestive [None]

NARRATIVE: CASE EVENT DATE: 20190605
